FAERS Safety Report 11919749 (Version 1)
Quarter: 2016Q1

REPORT INFORMATION
  Report Type: Spontaneous
  Country: US (occurrence: None)
  Receive Date: 20160114
  Receipt Date: 20160114
  Transmission Date: 20160526
  Serious: No
  Sender: FDA-Public Use
  Company Number: None

PATIENT
  Age: 29 Year
  Sex: Female
  Weight: 65.77 kg

DRUGS (8)
  1. EFFEXOR XR [Concomitant]
     Active Substance: VENLAFAXINE HYDROCHLORIDE
  2. NUVIGIL [Concomitant]
     Active Substance: ARMODAFINIL
  3. TECFIDERA [Suspect]
     Active Substance: DIMETHYL FUMARATE
     Indication: MULTIPLE SCLEROSIS
     Dosage: ONE PILL
     Route: 048
     Dates: start: 20150615, end: 20160113
  4. BACLOFEN. [Concomitant]
     Active Substance: BACLOFEN
  5. VITAMIN D (RX) [Concomitant]
  6. TOPAMAX [Concomitant]
     Active Substance: TOPIRAMATE
  7. TECFIDERA [Concomitant]
     Active Substance: DIMETHYL FUMARATE
  8. LYRICA [Concomitant]
     Active Substance: PREGABALIN

REACTIONS (1)
  - Alopecia [None]

NARRATIVE: CASE EVENT DATE: 20151022
